FAERS Safety Report 6392482-3 (Version None)
Quarter: 2009Q4

REPORT INFORMATION
  Report Type: 
  Country: None (occurrence: None)
  Receive Date: 20091007
  Receipt Date: 20090914
  Transmission Date: 20100525
  Serious: Yes (Hospitalization)
  Sender: FDA-Public Use
  Company Number: CA-SANOFI-SYNTHELABO-A01200909712

PATIENT
  Age: 67 Year
  Sex: Male
  Weight: 95.7 kg

DRUGS (7)
  1. ASPIRIN [Concomitant]
     Dosage: 80 MG
     Route: 048
  2. VITAMIN B-12 [Concomitant]
     Route: 048
  3. METOPROLOL [Concomitant]
     Route: 048
  4. COZAAR [Concomitant]
     Dosage: 100 MG
     Route: 048
  5. METFORMIN [Concomitant]
     Route: 048
  6. GLYBURIDE [Concomitant]
     Route: 048
  7. ELOXATIN [Suspect]
     Indication: COLORECTAL CANCER
     Route: 041
     Dates: start: 20090813, end: 20090813

REACTIONS (1)
  - PYREXIA [None]
